FAERS Safety Report 9769987 (Version 2)
Quarter: 2013Q4

REPORT INFORMATION
  Report Type: Spontaneous
  Country: US (occurrence: US)
  Receive Date: 20131218
  Receipt Date: 20131218
  Transmission Date: 20140711
  Serious: No
  Sender: FDA-Public Use
  Company Number: US-VERTEX PHARMACEUTICALS INC-AE-2011-000838

PATIENT
  Sex: Female
  Weight: 61.23 kg

DRUGS (7)
  1. INCIVEK [Suspect]
     Indication: HEPATITIS C
     Route: 048
     Dates: start: 201108
  2. PEGASYS [Concomitant]
     Indication: HEPATITIS C
     Route: 058
     Dates: start: 201108
  3. COPEGUS [Concomitant]
     Indication: HEPATITIS C
     Route: 048
     Dates: start: 201108
  4. OMEPRAZOLE [Concomitant]
  5. ASPIRIN [Concomitant]
  6. IRON [Concomitant]
  7. VITAMIN D2 [Concomitant]

REACTIONS (1)
  - Vomiting [Unknown]
